FAERS Safety Report 8427909-6 (Version None)
Quarter: 2012Q2

REPORT INFORMATION
  Report Type: 
  Country: None (occurrence: None)
  Receive Date: 20120611
  Receipt Date: 20120327
  Transmission Date: 20120825
  Serious: Yes (Other)
  Sender: FDA-Public Use
  Company Number: US-ASTRAZENECA-2012SE20795

PATIENT
  Age: 60 Year
  Sex: Male

DRUGS (18)
  1. PLAVIX [Concomitant]
     Route: 048
  2. CARVEDILOL [Concomitant]
     Route: 048
  3. LOVASTATIN [Concomitant]
     Route: 048
  4. LORTAB [Concomitant]
     Dosage: 5/325 MG DAILY
     Route: 048
  5. METOPROLOL TARTRATE [Suspect]
     Route: 048
  6. ASPIRIN [Concomitant]
     Route: 048
  7. SYMBICORT [Suspect]
     Dosage: 160/4.5 MCG, TWO PUFFS, TWO TIMS  A DAY
     Route: 055
  8. ALBUTEROL [Concomitant]
     Indication: DYSPNOEA
     Dosage: II PUFFS QID
     Route: 048
  9. AMIODARONE HCL [Concomitant]
     Route: 048
  10. LOVASTATIN [Concomitant]
     Route: 048
  11. LASIX [Concomitant]
     Route: 048
  12. LISINOPRIL [Suspect]
     Route: 048
  13. SPIRIVA [Concomitant]
     Dosage: DAILY
     Route: 055
  14. ALLOPURINOL [Concomitant]
     Route: 048
  15. DUENCLOS [Concomitant]
     Dosage: QID
     Route: 048
  16. METOPROLOL TARTRATE [Suspect]
     Route: 048
  17. NOVOLIN 70/30 [Concomitant]
     Dosage: 70/30, 35 UNITS, QAM AND 15 UNITS, QPM
     Route: 058
  18. HUMALIN [Concomitant]
     Dosage: 70/30, 40 UNITS QAM AND 23 UNITS QPM
     Route: 058

REACTIONS (11)
  - HYPERTENSION [None]
  - RENAL FAILURE [None]
  - ASTHMA [None]
  - CORONARY ARTERY DISEASE [None]
  - GOUT [None]
  - HYPERLIPIDAEMIA [None]
  - SLEEP APNOEA SYNDROME [None]
  - CHRONIC OBSTRUCTIVE PULMONARY DISEASE [None]
  - TYPE 2 DIABETES MELLITUS [None]
  - RHINITIS ALLERGIC [None]
  - CATARACT [None]
